FAERS Safety Report 13613763 (Version 1)
Quarter: 2017Q2

REPORT INFORMATION
  Report Type: Report from Study
  Country: US (occurrence: US)
  Receive Date: 20170606
  Receipt Date: 20170606
  Transmission Date: 20170830
  Serious: Yes (Hospitalization)
  Sender: FDA-Public Use
  Company Number: US-BAYER-2017-100044

PATIENT
  Age: 90 Year
  Sex: Male

DRUGS (12)
  1. RUTINOSCORBIN [Concomitant]
     Active Substance: ASCORBIC ACID\RUTIN
     Dosage: UNK
  2. VINPOCETINE [Concomitant]
     Active Substance: VINPOCETINE
  3. ASPIRIN. [Suspect]
     Active Substance: ASPIRIN
     Dosage: UNK
  4. LOZOL [Concomitant]
     Active Substance: INDAPAMIDE
     Dosage: UNK
  5. LOTENSIN [Concomitant]
     Active Substance: BENAZEPRIL HYDROCHLORIDE
     Dosage: UNK
  6. NORVASC [Concomitant]
     Active Substance: AMLODIPINE BESYLATE
  7. ULTRACET [Concomitant]
     Active Substance: ACETAMINOPHEN\TRAMADOL HYDROCHLORIDE
  8. TRICOR [Concomitant]
     Active Substance: FENOFIBRATE
     Dosage: UNK
  9. VISMODEGIB [Suspect]
     Active Substance: VISMODEGIB
     Indication: BASAL CELL CARCINOMA
     Dosage: UNK
  10. AMOXICILLINE [Concomitant]
     Active Substance: AMOXICILLIN
  11. KERLONE [Concomitant]
     Active Substance: BETAXOLOL HYDROCHLORIDE
     Dosage: UNK
  12. ZOCOR [Concomitant]
     Active Substance: SIMVASTATIN
     Dosage: UNK

REACTIONS (2)
  - Drug interaction [None]
  - Drug-induced liver injury [None]
